FAERS Safety Report 23891753 (Version 1)
Quarter: 2024Q2

REPORT INFORMATION
  Report Type: Spontaneous
  Country: PL (occurrence: PL)
  Receive Date: 20240524
  Receipt Date: 20240524
  Transmission Date: 20240716
  Serious: Yes (Death)
  Sender: FDA-Public Use
  Company Number: PL-NOVOPROD-1221762

PATIENT
  Age: 82 Year
  Sex: Female

DRUGS (1)
  1. NOVOSEVEN [Suspect]
     Active Substance: COAGULATION FACTOR VIIA RECOMBINANT HUMAN
     Indication: Haemorrhage subcutaneous
     Dosage: UNK
     Route: 042

REACTIONS (3)
  - Procedural complication [Fatal]
  - Antibody test positive [Unknown]
  - Off label use [Unknown]
